FAERS Safety Report 15616633 (Version 1)
Quarter: 2018Q4

REPORT INFORMATION
  Report Type: Spontaneous
  Country: US (occurrence: US)
  Receive Date: 20181109
  Receipt Date: 20181109
  Transmission Date: 20190205
  Serious: Yes (Disabling)
  Sender: FDA-Public Use
  Company Number: None

PATIENT
  Age: 42 Year
  Sex: Female
  Weight: 62.1 kg

DRUGS (11)
  1. MAGNESIUM [Concomitant]
     Active Substance: MAGNESIUM
  2. AIMOVIG [Suspect]
     Active Substance: ERENUMAB-AOOE
     Indication: MIGRAINE
     Dosage: ?          QUANTITY:2 INJECTION(S);OTHER FREQUENCY:1/MONTH;?
     Route: 058
     Dates: start: 20180718, end: 20181109
  3. STIMATE [Concomitant]
     Active Substance: DESMOPRESSIN ACETATE
  4. SUMATRIPTAN. [Concomitant]
     Active Substance: SUMATRIPTAN
  5. MEXILETINE [Concomitant]
     Active Substance: MEXILETINE
  6. ACETAZOLAMIDE. [Concomitant]
     Active Substance: ACETAZOLAMIDE
  7. LO-SEASONIQUE [Concomitant]
  8. FLEXERIL [Concomitant]
     Active Substance: CYCLOBENZAPRINE HYDROCHLORIDE
  9. VITAMIN D [Concomitant]
     Active Substance: CHOLECALCIFEROL
  10. ALEVE [Concomitant]
     Active Substance: NAPROXEN SODIUM
  11. MULTI-VITAMIN [Concomitant]
     Active Substance: .ALPHA.-TOCOPHEROL ACETATE, DL-\ASCORBIC ACID\CYANOCOBALAMIN\FLUORIDE ION\FOLIC ACID\NIACIN\PYRIDOXINE\RIBOFLAVIN\THIAMINE\VITAMIN A\VITAMIN D

REACTIONS (12)
  - Pain [None]
  - Insomnia [None]
  - Constipation [None]
  - Cervicogenic headache [None]
  - Diarrhoea [None]
  - Muscle tightness [None]
  - Drug ineffective [None]
  - Neck pain [None]
  - Condition aggravated [None]
  - Upper respiratory tract infection [None]
  - Fibromyalgia [None]
  - Defaecation urgency [None]

NARRATIVE: CASE EVENT DATE: 20181109
